FAERS Safety Report 10253108 (Version 1)
Quarter: 2014Q2

REPORT INFORMATION
  Report Type: Spontaneous
  Country: US (occurrence: US)
  Receive Date: 20140623
  Receipt Date: 20140623
  Transmission Date: 20141212
  Serious: No
  Sender: FDA-Public Use
  Company Number: US-ZOGENIX, INC.-2011ZX000404

PATIENT
  Age: 44 Year
  Sex: Female
  Weight: 77.18 kg

DRUGS (3)
  1. SUMAVEL DOSEPRO [Suspect]
     Indication: MIGRAINE
     Dates: start: 20110804, end: 20110804
  2. CELEXA                             /00582602/ [Concomitant]
     Indication: ANXIETY
     Route: 048
  3. GABAPENTIN [Concomitant]
     Indication: SLEEP DISORDER
     Route: 048

REACTIONS (4)
  - Chest discomfort [Recovering/Resolving]
  - Pain in jaw [Recovering/Resolving]
  - Dizziness [Recovering/Resolving]
  - Nausea [Recovering/Resolving]
